FAERS Safety Report 14708736 (Version 2)
Quarter: 2018Q2

REPORT INFORMATION
  Report Type: Spontaneous
  Country: DE (occurrence: DE)
  Receive Date: 20180403
  Receipt Date: 20180530
  Transmission Date: 20180711
  Serious: Yes (Hospitalization)
  Sender: FDA-Public Use
  Company Number: DE-TEVA-2018-DE-874610

PATIENT
  Age: 79 Year
  Sex: Male

DRUGS (21)
  1. SILDENAFIL RATIOPHARM PAH 20 MG FILMTABLETTEN [Suspect]
     Active Substance: SILDENAFIL
     Dosage: 1-1-1
     Dates: start: 201802
  2. METOSUC 47.5 MG [Concomitant]
     Dosage: 1-0-0
  3. TORASEMID 10 MG [Concomitant]
     Dosage: 2-1-0
  4. RAMIPRIL 2.5 MG [Concomitant]
     Dosage: 1-0-0
  5. TOUJEO [Concomitant]
     Active Substance: INSULIN GLARGINE
     Dosage: 60 IU (INTERNATIONAL UNIT) DAILY; IN THE EVENING
  6. METOSUC 47.5 MG [Concomitant]
     Dosage: 1-0-1
  7. MILNANEURAX 25 MG [Concomitant]
     Dosage: 1-1-0
  8. HUMALOG [Concomitant]
     Active Substance: INSULIN LISPRO
     Dosage: AS REQUIRED
  9. SILDENAFIL RATIOPHARM PAH 20 MG FILMTABLETTEN [Suspect]
     Active Substance: SILDENAFIL
     Dosage: 1-1-1
     Dates: start: 201706
  10. EFEROX 50 MICROGRAM [Concomitant]
     Dosage: 1-0-0
  11. TORASEMID 10 MG [Concomitant]
     Dosage: 1-0-0
  12. RAMIPRIL 2.5 MG [Concomitant]
     Dosage: 1-0-0
  13. ELIQUIS [Concomitant]
     Active Substance: APIXABAN
     Dosage: 1-0-1
  14. ATORVASTATIN 40 MG [Concomitant]
     Active Substance: ATORVASTATIN
     Dosage: 1-0-0
  15. SILDENAFIL RATIOPHARM PAH 20 MG FILMTABLETTEN [Suspect]
     Active Substance: SILDENAFIL
     Indication: PULMONARY ARTERIAL HYPERTENSION
     Dosage: HALF A TABLET IN THE MORNING AND IN THE EVENING
     Dates: start: 20180319, end: 201803
  16. ELIQUIS [Concomitant]
     Active Substance: APIXABAN
     Dosage: 1-0-0
  17. MILNANEURAX 25 MG [Concomitant]
     Dosage: 1-0-0
  18. DEKRISTOL 20.000 I.E. [Concomitant]
  19. OMEPRAZOL 40 MG [Concomitant]
     Active Substance: OMEPRAZOLE
     Dosage: 1-0-0
  20. EFEROX 50 MICROGRAM [Concomitant]
     Dosage: 1-0-0
  21. ATORVASTATIN 40 MG [Concomitant]
     Active Substance: ATORVASTATIN
     Dosage: 0-0-1

REACTIONS (5)
  - Suffocation feeling [Recovered/Resolved]
  - General physical health deterioration [Recovered/Resolved]
  - Asthenia [Recovered/Resolved]
  - Wrong technique in product usage process [Unknown]
  - Dyspnoea [Recovered/Resolved]

NARRATIVE: CASE EVENT DATE: 201803
